FAERS Safety Report 4871906-4 (Version None)
Quarter: 2006Q1

REPORT INFORMATION
  Report Type: 
  Country: None (occurrence: None)
  Receive Date: 20060104
  Receipt Date: 20051228
  Transmission Date: 20060701
  Serious: Yes (Hospitalization)
  Sender: FDA-Public Use
  Company Number: PHEH2005US13896

PATIENT
  Age: 22 Year
  Sex: Female

DRUGS (2)
  1. ZELNORM [Suspect]
     Indication: ILEUS PARALYTIC
     Dates: start: 20050401, end: 20050918
  2. ZELNORM [Suspect]
     Dosage: 12 MG, TID
     Dates: start: 20050919

REACTIONS (3)
  - AGGRESSION [None]
  - ILEUS [None]
  - SURGERY [None]
